FAERS Safety Report 6383424-5 (Version None)
Quarter: 2009Q3

REPORT INFORMATION
  Report Type: 
  Country: None (occurrence: None)
  Receive Date: 20090924
  Receipt Date: 20090608
  Transmission Date: 20100115
  Serious: No
  Sender: FDA-Public Use
  Company Number: US-CVT-090354

PATIENT
  Sex: Male

DRUGS (1)
  1. RANEXA [Suspect]
     Indication: ANGINA PECTORIS
     Dosage: 1000 MG, BID, ORAL
     Route: 048

REACTIONS (3)
  - DIZZINESS [None]
  - FEELING ABNORMAL [None]
  - VISUAL BRIGHTNESS [None]
